FAERS Safety Report 9194084 (Version 1)
Quarter: 2013Q1

REPORT INFORMATION
  Report Type: Spontaneous
  Country: ES (occurrence: ES)
  Receive Date: 20130327
  Receipt Date: 20130327
  Transmission Date: 20140127
  Serious: Yes (Hospitalization)
  Sender: FDA-Public Use
  Company Number: ES-ELI_LILLY_AND_COMPANY-ES201303007845

PATIENT
  Age: 47 Year
  Sex: Female
  Weight: 108 kg

DRUGS (13)
  1. FORSTEO [Suspect]
     Indication: OSTEOPOROSIS
     Dosage: 20 UG, QD
     Route: 058
     Dates: start: 20100322
  2. ADOLONTA [Concomitant]
     Indication: PAIN
     Dosage: 50 MG, TID
     Route: 048
  3. RENITEN [Concomitant]
     Indication: HYPERTENSION
     Dosage: UNK, QD
     Route: 048
  4. NORVAS [Concomitant]
     Indication: HYPERTENSION
     Dosage: 10 MG, QD
     Route: 048
  5. IDEOS [Concomitant]
     Indication: OSTEOPOROSIS
     Dosage: UNK, QD
     Route: 048
  6. LEXATIN [Concomitant]
     Indication: ANXIETY
     Dosage: 1.5 MG, TID
     Route: 048
  7. ROBAXIN [Concomitant]
     Indication: PAIN
     Dosage: UNK, QD
     Route: 048
  8. CARDIL                             /00489702/ [Concomitant]
     Indication: BLOOD CHOLESTEROL ABNORMAL
     Dosage: 10 MG, QD
     Route: 048
  9. METOTREXATO [Concomitant]
     Indication: ARTHRITIS
     Dosage: UNK, 6/W
     Route: 048
  10. HEPARINA [Concomitant]
     Indication: ANTICOAGULANT THERAPY
     Dosage: UNK
     Route: 048
     Dates: start: 20100312
  11. AMOXICILINA [Concomitant]
     Indication: INFECTION
     Dosage: 500 MG, TID
     Route: 048
     Dates: start: 20100312
  12. CIPROFLOXACINO [Concomitant]
     Indication: INFECTION
     Dosage: UNK, BID
     Route: 048
     Dates: start: 20100312
  13. IBUPROFENO [Concomitant]
     Indication: PAIN
     Dosage: 600 MG, TID
     Route: 048

REACTIONS (3)
  - Postoperative wound infection [Unknown]
  - Hypoaesthesia [Recovering/Resolving]
  - Muscle spasms [Not Recovered/Not Resolved]
